FAERS Safety Report 8204694-4 (Version None)
Quarter: 2012Q1

REPORT INFORMATION
  Report Type: 
  Country: None (occurrence: None)
  Receive Date: 20120313
  Receipt Date: 20120309
  Transmission Date: 20120608
  Serious: Yes (Other)
  Sender: FDA-Public Use
  Company Number: US-VERTEX PHARMACEUTICALS INC.-AE-2011-004888

PATIENT
  Sex: Female
  Weight: 102.15 kg

DRUGS (6)
  1. BACTRIM [Concomitant]
     Indication: URINARY TRACT INFECTION
  2. NADOLOL [Concomitant]
     Dates: start: 20111205
  3. INCIVEK [Suspect]
     Indication: HEPATITIS C
     Route: 048
     Dates: start: 20111205
  4. RIBAVIRIN [Concomitant]
     Indication: HEPATITIS C
     Route: 048
  5. PEG-INTRON [Concomitant]
     Indication: HEPATITIS C
     Route: 058
     Dates: start: 20111205
  6. PANTOPRAZOLE [Concomitant]

REACTIONS (4)
  - WHITE BLOOD CELL COUNT DECREASED [None]
  - URINARY TRACT INFECTION [None]
  - VOMITING [None]
  - NEUTROPENIA [None]
